FAERS Safety Report 12599144 (Version 1)
Quarter: 2016Q3

REPORT INFORMATION
  Report Type: Spontaneous
  Country: US (occurrence: US)
  Receive Date: 20160727
  Receipt Date: 20160727
  Transmission Date: 20161109
  Serious: No
  Sender: FDA-Public Use
  Company Number: US-SA-2016SA073225

PATIENT
  Sex: Male

DRUGS (1)
  1. AMBIEN CR [Suspect]
     Active Substance: ZOLPIDEM TARTRATE
     Indication: NASOPHARYNGITIS
     Route: 048

REACTIONS (3)
  - Anxiety [Unknown]
  - Nervousness [Unknown]
  - Sleep phase rhythm disturbance [Not Recovered/Not Resolved]
